FAERS Safety Report 24959582 (Version 1)
Quarter: 2025Q1

REPORT INFORMATION
  Report Type: Spontaneous
  Country: GB (occurrence: GB)
  Receive Date: 20250212
  Receipt Date: 20250212
  Transmission Date: 20250408
  Serious: Yes (Other)
  Sender: TEVA
  Company Number: GB-MHRA-TPP1715703C2001238YC1738679320477

PATIENT
  Age: 34 Year
  Sex: Female
  Weight: 51 kg

DRUGS (7)
  1. SOLIFENACIN [Suspect]
     Active Substance: SOLIFENACIN
     Indication: Ill-defined disorder
     Dosage: TAKE ONE DAILY, DAILY DOSE: 1 DOSAGE FORM DAILY, DURATION: 16 DAYS
     Route: 065
     Dates: start: 20250115, end: 20250130
  2. NITROFURANTOIN [Concomitant]
     Active Substance: NITROFURANTOIN
     Indication: Ill-defined disorder
     Route: 065
     Dates: start: 20250203
  3. CETIRIZINE [Concomitant]
     Active Substance: CETIRIZINE HYDROCHLORIDE
     Indication: Ill-defined disorder
     Dosage: TAKE ONE DAILY, DAILY DOSE: 1 DOSAGE FORM DAILY
     Route: 065
     Dates: start: 20250127
  4. OXYBUTYNIN [Concomitant]
     Active Substance: OXYBUTYNIN
     Indication: Ill-defined disorder
     Dosage: TAKE ONE TABLET TWICE DAILY TO TREAT BLADDER SYMPTOMS, DAILY DOSE: 2 DOSAGE FORM DAILY
     Route: 065
     Dates: start: 20250203
  5. HYDROMOL [Concomitant]
     Indication: Ill-defined disorder
     Route: 065
     Dates: start: 20250127
  6. SENNA [Concomitant]
     Active Substance: SENNOSIDES
     Indication: Ill-defined disorder
     Dosage: TAKE 2 AT NIGHT, DAILY DIOSE: 2 DOSAGE FORM DAILY
     Route: 065
     Dates: start: 20250115
  7. POLYETHYLENE GLYCOL 3350\POTASSIUM CHLORIDE\SODIUM BICARBONATE\SODIUM [Concomitant]
     Active Substance: POLYETHYLENE GLYCOL 3350\POTASSIUM CHLORIDE\SODIUM BICARBONATE\SODIUM CHLORIDE
     Indication: Ill-defined disorder
     Route: 065
     Dates: start: 20250115, end: 20250125

REACTIONS (1)
  - Rash pruritic [Recovered/Resolved]
